FAERS Safety Report 23485041 (Version 1)
Quarter: 2024Q1

REPORT INFORMATION
  Report Type: Spontaneous
  Country: FR (occurrence: FR)
  Receive Date: 20240206
  Receipt Date: 20240206
  Transmission Date: 20240409
  Serious: Yes (Death, Other)
  Sender: FDA-Public Use
  Company Number: None

PATIENT
  Age: 73 Year
  Sex: Male
  Weight: 74 kg

DRUGS (25)
  1. KARDEGIC [Suspect]
     Active Substance: ASPIRIN DL-LYSINE
     Indication: Myocardial ischaemia
     Dosage: POWDER FOR ORAL SOLUTION IN SACHET
     Route: 048
     Dates: start: 20231201, end: 20231221
  2. DICLOFENAC SODIUM [Suspect]
     Active Substance: DICLOFENAC\DICLOFENAC SODIUM
     Indication: Product used for unknown indication
     Dosage: 75 MG QD
     Route: 048
     Dates: start: 20231213, end: 20231220
  3. PREDNISONE [Suspect]
     Active Substance: PREDNISONE
     Indication: Superior vena cava syndrome
     Dosage: 70 MG, QD FOR ONE MONTH
     Route: 048
     Dates: start: 20231207, end: 20231213
  4. BROMAZEPAM [Suspect]
     Active Substance: BROMAZEPAM
     Dosage: UNK
  5. FUROSEMIDE [Suspect]
     Active Substance: FUROSEMIDE
     Dosage: UNK
  6. BISOPROLOL FUMARATE [Suspect]
     Active Substance: BISOPROLOL FUMARATE
     Dosage: UNK
  7. DICLOFENAC POTASSIUM [Suspect]
     Active Substance: DICLOFENAC POTASSIUM
     Indication: Product used for unknown indication
     Dosage: 75 MG, QD, GASTRO-RESISTANT COATED TABLET, 3 TAKEN IN THE EVENING
     Route: 048
     Dates: start: 20231213, end: 20231220
  8. ASPIRIN [Suspect]
     Active Substance: ASPIRIN
     Dosage: UNK
     Dates: end: 20231201
  9. TAMSULOSIN HYDROCHLORIDE [Suspect]
     Active Substance: TAMSULOSIN HYDROCHLORIDE
     Dosage: UNK
  10. METHYLPREDNISOLONE [Suspect]
     Active Substance: METHYLPREDNISOLONE
     Indication: Superior vena cava syndrome
     Dosage: (IM-IV)
     Route: 042
     Dates: start: 20231130, end: 20231207
  11. DICLOFENAC POTASSIUM [Suspect]
     Active Substance: DICLOFENAC POTASSIUM
     Indication: Pain in extremity
     Dosage: UNK
  12. METHYLPREDNISOLONE HEMISUCCINATE [Suspect]
     Active Substance: METHYLPREDNISOLONE HEMISUCCINATE
     Indication: Superior vena cava syndrome
     Dosage: 160 MG, QD (IM?IV)
     Dates: start: 20231130, end: 20231207
  13. KEYTRUDA [Suspect]
     Active Substance: PEMBROLIZUMAB
     Indication: Adenocarcinoma
     Dosage: 200 MG, TOTAL BY IV INFUSION OVER 30 MINUTES
     Route: 042
     Dates: start: 20231215, end: 20231215
  14. KEYTRUDA [Suspect]
     Active Substance: PEMBROLIZUMAB
     Indication: Non-small cell lung cancer
  15. PREDNISOLONE [Suspect]
     Active Substance: PREDNISOLONE
     Indication: Superior vena cava syndrome
     Dosage: 120 MG, QD
     Route: 048
     Dates: start: 20231215, end: 20231216
  16. PREDNISOLONE [Suspect]
     Active Substance: PREDNISOLONE
     Dosage: 60 MG, QD
     Route: 048
     Dates: start: 20231217, end: 20231219
  17. SITAGLIPTIN [Suspect]
     Active Substance: SITAGLIPTIN
     Dosage: UNK
  18. PEMETREXED [Suspect]
     Active Substance: PEMETREXED
     Indication: Adenocarcinoma
     Dosage: 935 MG BY IV INFUSION OVER 10 MINUTES
     Route: 042
     Dates: start: 20231215, end: 20231215
  19. PEMETREXED [Suspect]
     Active Substance: PEMETREXED
     Indication: Non-small cell lung cancer
  20. CARBOPLATIN [Suspect]
     Active Substance: CARBOPLATIN
     Indication: Adenocarcinoma
     Dosage: 420 MG BY IV INFUSION OVER 30 MINUTES.
     Route: 042
     Dates: start: 20231215, end: 20231215
  21. CARBOPLATIN [Suspect]
     Active Substance: CARBOPLATIN
     Indication: Non-small cell lung cancer
  22. ENTRESTO [Suspect]
     Active Substance: SACUBITRIL\VALSARTAN
     Dosage: UNK
  23. EZETIMIBE\ROSUVASTATIN [Suspect]
     Active Substance: EZETIMIBE\ROSUVASTATIN
     Dosage: UNK
  24. DAPAGLIFLOZIN [Suspect]
     Active Substance: DAPAGLIFLOZIN
     Dosage: UNK
  25. OZEMPIC [Suspect]
     Active Substance: SEMAGLUTIDE
     Dosage: UNK

REACTIONS (8)
  - Duodenal perforation [Fatal]
  - Duodenal perforation [Fatal]
  - Hepatic cytolysis [Unknown]
  - Renal failure [Unknown]
  - Shock haemorrhagic [Unknown]
  - Livedo reticularis [Unknown]
  - Hypotension [Unknown]
  - Treatment failure [Unknown]

NARRATIVE: CASE EVENT DATE: 20231220
